FAERS Safety Report 5916330-8 (Version None)
Quarter: 2008Q4

REPORT INFORMATION
  Report Type: 
  Country: None (occurrence: None)
  Receive Date: 20081013
  Receipt Date: 20081008
  Transmission Date: 20090506
  Serious: Yes (Death, Other)
  Sender: FDA-Public Use
  Company Number: PHHY2008JP23035

PATIENT
  Age: 90 Year
  Sex: Female

DRUGS (4)
  1. DIOVAN [Suspect]
     Indication: CARDIAC HYPERTROPHY
     Dosage: 80 MG, QD
     Route: 048
     Dates: start: 20080826, end: 20080903
  2. LASIX [Concomitant]
     Dosage: 80 MG/DAY
     Route: 048
     Dates: start: 20080826, end: 20080903
  3. EPLERENONE (SELARA) [Concomitant]
     Dosage: 50 MG/DAY
     Route: 048
     Dates: start: 20080826, end: 20080903
  4. TANADOPA [Concomitant]
     Dosage: 3 G/DAY
     Route: 048
     Dates: start: 20080826, end: 20080903

REACTIONS (6)
  - CARDIAC ARREST [None]
  - CARDIAC HYPERTROPHY [None]
  - DISEASE PROGRESSION [None]
  - HYPOALBUMINAEMIA [None]
  - RENAL FAILURE [None]
  - RESPIRATORY ARREST [None]
